FAERS Safety Report 4565542-7 (Version None)
Quarter: 2005Q1

REPORT INFORMATION
  Report Type: 
  Country: None (occurrence: None)
  Receive Date: 20050125
  Receipt Date: 20050125
  Transmission Date: 20050727
  Serious: Yes (Life-Threatening, Hospitalization)
  Sender: FDA-Public Use
  Company Number: None

PATIENT
  Age: 89 Year
  Sex: Female
  Weight: 49.8957 kg

DRUGS (2)
  1. BEXTRA [Suspect]
     Indication: RHEUMATOID ARTHRITIS
     Dosage: DAILY   ORAL
     Route: 048
     Dates: start: 20040601, end: 20050103
  2. MEDICINES FOR THYROID AND BLOOD PRESSURE [Concomitant]

REACTIONS (1)
  - MYOCARDIAL INFARCTION [None]
